FAERS Safety Report 7897482-X (Version None)
Quarter: 2011Q4

REPORT INFORMATION
  Report Type: 
  Country: None (occurrence: None)
  Receive Date: 20111107
  Receipt Date: 20111026
  Transmission Date: 20120403
  Serious: Yes (Hospitalization)
  Sender: FDA-Public Use
  Company Number: JP-NOVOPROD-338360

PATIENT

DRUGS (9)
  1. NORVASC [Concomitant]
     Dosage: 5 MG, QD
     Route: 048
  2. LAMISIL [Concomitant]
     Dosage: 125 MG, QD
     Route: 048
  3. VICTOZA [Suspect]
     Dosage: 0.6 MG, QD
     Route: 058
     Dates: start: 20111025
  4. EPINASTINE HYDROCHLORIDE [Concomitant]
     Dosage: 20 MG, QD
     Route: 048
  5. MYSER                              /00115501/ [Concomitant]
     Dosage: /CU
  6. VICTOZA [Suspect]
     Indication: TYPE 2 DIABETES MELLITUS
     Dosage: 0.3 MG, QD
     Route: 058
     Dates: start: 20111018, end: 20111025
  7. CANDESARTAN CILEXETIL [Concomitant]
     Dosage: 8 MG, QD
     Route: 048
  8. MAGNESIUM SULFATE [Concomitant]
  9. PURSENNID                          /00142207/ [Concomitant]

REACTIONS (1)
  - ILEUS [None]
